FAERS Safety Report 15810590 (Version 1)
Quarter: 2019Q1

REPORT INFORMATION
  Report Type: Spontaneous
  Country: US (occurrence: US)
  Receive Date: 20190111
  Receipt Date: 20190111
  Transmission Date: 20190417
  Serious: Yes (Hospitalization)
  Sender: FDA-Public Use
  Company Number: US-ROCHE-2151873

PATIENT
  Age: 81 Year
  Sex: Male
  Weight: 86.26 kg

DRUGS (1)
  1. RITUXAN [Suspect]
     Active Substance: RITUXIMAB
     Indication: CHRONIC LYMPHOCYTIC LEUKAEMIA
     Dosage: FOR 8 WEEKS
     Route: 065
     Dates: start: 20180611

REACTIONS (2)
  - Myocardial necrosis marker increased [Unknown]
  - Chest pain [Unknown]

NARRATIVE: CASE EVENT DATE: 20180612
